FAERS Safety Report 19413505 (Version 1)
Quarter: 2021Q2

REPORT INFORMATION
  Report Type: Spontaneous
  Country: AU (occurrence: AU)
  Receive Date: 20210614
  Receipt Date: 20210614
  Transmission Date: 20210717
  Serious: Yes (Hospitalization)
  Sender: FDA-Public Use
  Company Number: AU-PFIZER INC-905475

PATIENT
  Age: 21 Year
  Sex: Female

DRUGS (7)
  1. SYNTOCINON [Concomitant]
     Active Substance: OXYTOCIN
     Dosage: 5 IU
     Route: 040
  2. DESFLURANE. [Suspect]
     Active Substance: DESFLURANE
     Indication: MAINTENANCE OF ANAESTHESIA
     Dosage: AT LEAST 1 MINIMUM ALVEOLAR CONCENTRATION
  3. CEPHAZOLIN [Concomitant]
     Active Substance: CEFAZOLIN
     Indication: PRODUCT USED FOR UNKNOWN INDICATION
     Dosage: 2 G
     Route: 040
  4. SYNTOCINON [Concomitant]
     Active Substance: OXYTOCIN
     Indication: PRODUCT USED FOR UNKNOWN INDICATION
     Dosage: 10 IU/HR
     Route: 041
  5. THIOPENTAL SODIUM. [Suspect]
     Active Substance: THIOPENTAL SODIUM
     Indication: INDUCTION OF ANAESTHESIA
     Dosage: 3 MG/KG
  6. ROCURONIUM BROMIDE. [Suspect]
     Active Substance: ROCURONIUM BROMIDE
     Indication: INDUCTION OF ANAESTHESIA
     Dosage: A SINGLE DOSE OF 0.5 MG/KG
  7. SODIUM CITRATE. [Concomitant]
     Active Substance: SODIUM CITRATE
     Indication: PRODUCT USED FOR UNKNOWN INDICATION
     Dosage: 30 ML
     Route: 048

REACTIONS (2)
  - Atelectasis [Recovered/Resolved]
  - Bronchial secretion retention [Recovered/Resolved]
